FAERS Safety Report 25357020 (Version 1)
Quarter: 2025Q2

REPORT INFORMATION
  Report Type: Spontaneous
  Country: US (occurrence: US)
  Receive Date: 20250526
  Receipt Date: 20250526
  Transmission Date: 20250716
  Serious: No
  Sender: VANDA PHARMACEUTICALS
  Company Number: US-VANDA PHARMACEUTICALS, INC-2025ILOUS002030

PATIENT
  Sex: Female

DRUGS (2)
  1. FANAPT [Suspect]
     Active Substance: ILOPERIDONE
     Indication: Product used for unknown indication
     Dosage: 6 MILLIGRAM, BID
  2. FANAPT [Suspect]
     Active Substance: ILOPERIDONE
     Dosage: 8 MILLIGRAM, BID

REACTIONS (1)
  - Orthostatic hypotension [Unknown]
